FAERS Safety Report 19875245 (Version 2)
Quarter: 2021Q4

REPORT INFORMATION
  Report Type: Spontaneous
  Country: US (occurrence: US)
  Receive Date: 20210923
  Receipt Date: 20211004
  Transmission Date: 20220303
  Serious: Yes (Life-Threatening, Hospitalization)
  Sender: FDA-Public Use
  Company Number: US-TEVA-2021-US-1955308

PATIENT
  Age: 54 Year
  Sex: Female

DRUGS (5)
  1. PHENTERMINE [Suspect]
     Active Substance: PHENTERMINE
     Indication: Obesity
     Dosage: STARTED A WEEK EARLIER BY HER PRIMARY DOCTOR
     Route: 065
  2. PHENDIMETRAZINE. [Suspect]
     Active Substance: PHENDIMETRAZINE TARTRATE
     Indication: Obesity
     Dosage: STARTED A WEEK EARLIER BY HER PRIMARY DOCTOR
     Route: 065
  3. LOSARTAN [Concomitant]
     Active Substance: LOSARTAN
     Indication: Hypertension
     Route: 065
  4. METFORMIN [Concomitant]
     Active Substance: METFORMIN HYDROCHLORIDE
     Indication: Type 2 diabetes mellitus
     Route: 065
  5. LEVOTHYROXINE [Concomitant]
     Active Substance: LEVOTHYROXINE
     Indication: Hypothyroidism
     Route: 065

REACTIONS (2)
  - Atrial fibrillation [Recovering/Resolving]
  - Respiratory distress [Unknown]
